FAERS Safety Report 20421857 (Version 2)
Quarter: 2022Q2

REPORT INFORMATION
  Report Type: Report from Study
  Country: US (occurrence: US)
  Receive Date: 20220203
  Receipt Date: 20220404
  Transmission Date: 20220720
  Serious: No
  Sender: FDA-Public Use
  Company Number: US-BIOVITRUM-2021US8096

PATIENT
  Age: 57 Year
  Sex: Female

DRUGS (5)
  1. KINERET [Suspect]
     Active Substance: ANAKINRA
     Indication: Pericarditis
     Route: 058
     Dates: start: 20210827
  2. KINERET [Suspect]
     Active Substance: ANAKINRA
     Indication: Still^s disease
     Route: 058
     Dates: start: 20211207
  3. IBUPROFEN [Suspect]
     Active Substance: IBUPROFEN
     Indication: Product used for unknown indication
     Dosage: HIGH DOSE
  4. COLCHICINE [Concomitant]
     Active Substance: COLCHICINE
  5. LEFLUNOMIDE [Concomitant]
     Active Substance: LEFLUNOMIDE

REACTIONS (13)
  - COVID-19 [Unknown]
  - Rhinorrhoea [Unknown]
  - Burning sensation [Unknown]
  - Injection site bruising [Unknown]
  - Injection site pruritus [Not Recovered/Not Resolved]
  - Injection site mass [Unknown]
  - Injection site urticaria [Not Recovered/Not Resolved]
  - Injection site rash [Not Recovered/Not Resolved]
  - Injection site irritation [Unknown]
  - Injection site reaction [Unknown]
  - Injection site discolouration [Unknown]
  - Product dose omission issue [Unknown]
  - Off label use [Unknown]

NARRATIVE: CASE EVENT DATE: 20211207
